FAERS Safety Report 5597826-8 (Version None)
Quarter: 2007Q4

REPORT INFORMATION
  Report Type: 
  Country: None (occurrence: None)
  Receive Date: 20071221
  Receipt Date: 20070717
  Transmission Date: 20080405
  Serious: Yes (Other)
  Sender: FDA-Public Use
  Company Number: US-2007-023787

PATIENT
  Age: 79 Year
  Sex: Female
  Weight: 78 kg

DRUGS (3)
  1. BETAPACE [Suspect]
     Indication: CARDIOVASCULAR EVENT PROPHYLAXIS
     Dosage: 40 MG, 2X/DAY, ORAL
     Route: 048
     Dates: start: 20060501
  2. SYNTHROID [Concomitant]
  3. COUMADIN [Concomitant]

REACTIONS (3)
  - CARDIAC FLUTTER [None]
  - FLUSHING [None]
  - SINUS BRADYCARDIA [None]
